FAERS Safety Report 4274514-1 (Version None)
Quarter: 2004Q1

REPORT INFORMATION
  Report Type: 
  Country: None (occurrence: None)
  Receive Date: 20040120
  Receipt Date: 20040106
  Transmission Date: 20041129
  Serious: Yes (Death)
  Sender: FDA-Public Use
  Company Number: US-ROCHE-355284

PATIENT
  Age: 54 Year
  Sex: Female
  Weight: 97.1 kg

DRUGS (15)
  1. DEMADEX [Suspect]
     Indication: DRUG USE FOR UNKNOWN INDICATION
     Route: 048
     Dates: end: 20031228
  2. ACCUPRIL [Suspect]
     Indication: DRUG USE FOR UNKNOWN INDICATION
     Dosage: TAKEN AT BEDTIME.
     Route: 048
  3. PLAVIX [Concomitant]
     Route: 048
  4. ALDACTONE [Concomitant]
     Route: 048
  5. REMERON [Concomitant]
     Dosage: AT BEDTIME.
     Route: 048
  6. TRANSDERM-NITRO [Concomitant]
     Dosage: ADMINISTERED AT BEDTIME AND REMOVED AT NOON.
     Route: 061
  7. CATAPRES [Concomitant]
     Indication: HYPERTENSION
     Dosage: ALSO PRN WHEN BP } 170.
     Route: 048
  8. HUMALOG [Concomitant]
     Dosage: STRENGTH REPORTED AS 75/25.
     Route: 058
  9. ACTOS [Concomitant]
     Route: 048
  10. K-DUR 10 [Concomitant]
     Route: 048
  11. COREG [Concomitant]
     Route: 048
  12. ALPRAZOLAM [Concomitant]
     Route: 048
  13. ASPIRIN [Concomitant]
     Route: 048
  14. DIGOXIN [Concomitant]
     Route: 048
  15. ZOCOR [Concomitant]
     Route: 048

REACTIONS (6)
  - ARTHRALGIA [None]
  - CARDIO-RESPIRATORY ARREST [None]
  - HYPERTENSIVE ENCEPHALOPATHY [None]
  - HYPOTENSION [None]
  - MYOCARDIAL INFARCTION [None]
  - PAIN [None]
